FAERS Safety Report 8133145-3 (Version None)
Quarter: 2012Q1

REPORT INFORMATION
  Report Type: 
  Country: None (occurrence: None)
  Receive Date: 20120213
  Receipt Date: 20120209
  Transmission Date: 20120608
  Serious: Yes (Death)
  Sender: FDA-Public Use
  Company Number: PHHO2012CH002451

PATIENT

DRUGS (8)
  1. FLUOCIM [Concomitant]
     Dosage: 20 MG, UNK
     Route: 048
     Dates: start: 20050404
  2. CONDROSULF [Concomitant]
     Dosage: 1600 MG, UNK
     Route: 048
     Dates: start: 20070730
  3. METFORMIN HCL [Concomitant]
     Dosage: UNK
     Route: 048
     Dates: start: 20081101
  4. CALCIUM [Concomitant]
     Dosage: 500 MG, UNK
     Route: 048
     Dates: start: 20050509
  5. VITAMIN D [Concomitant]
     Dosage: 4 MG, UNK
     Route: 048
     Dates: start: 20050509
  6. METOPROLOL TARTRATE AND HYDROCHLOROTHIAZIDE [Concomitant]
     Dosage: 100 MG, UNK
     Dates: start: 20050404
  7. MICARDIS [Concomitant]
     Dosage: 80 MG, UNK
     Dates: start: 20050404
  8. LETROZOLE [Suspect]
     Indication: BREAST CANCER
     Dosage: 2.5 MG, QD
     Route: 048
     Dates: start: 20101015

REACTIONS (1)
  - CARDIAC FAILURE [None]
